FAERS Safety Report 25415613 (Version 1)
Quarter: 2025Q2

REPORT INFORMATION
  Report Type: Spontaneous
  Country: JP (occurrence: None)
  Receive Date: 20250610
  Receipt Date: 20250610
  Transmission Date: 20250716
  Serious: Yes (Hospitalization, Other)
  Sender: ALEXION PHARMACEUTICALS
  Company Number: JP-ASTRAZENECA-250054423_012620_P_1

PATIENT
  Age: 63 Year
  Weight: 47 kg

DRUGS (16)
  1. FASLODEX [Suspect]
     Active Substance: FULVESTRANT
     Indication: Breast cancer
  2. FASLODEX [Suspect]
     Active Substance: FULVESTRANT
  3. TRUQAP [Suspect]
     Active Substance: CAPIVASERTIB
     Indication: Breast cancer
  4. DAPAGLIFLOZIN [Suspect]
     Active Substance: DAPAGLIFLOZIN
  5. REBAMIPIDE [Concomitant]
     Active Substance: REBAMIPIDE
  6. PYRIDOXAL [Concomitant]
     Active Substance: PYRIDOXAL
  7. LYRICA [Concomitant]
     Active Substance: PREGABALIN
  8. ASCORBIC ACID\VITAMINS [Concomitant]
     Active Substance: ASCORBIC ACID\VITAMINS
  9. LASIX [Concomitant]
     Active Substance: FUROSEMIDE
  10. Glycyron [Concomitant]
  11. URSO [Concomitant]
     Active Substance: URSODIOL
  12. METGLUCO [Concomitant]
     Active Substance: METFORMIN HYDROCHLORIDE
  13. TRESIBA [Concomitant]
     Active Substance: INSULIN DEGLUDEC
  14. TRANEXAMIC ACID [Concomitant]
     Active Substance: TRANEXAMIC ACID
  15. SENNOSIDES [Concomitant]
     Active Substance: SENNOSIDES
  16. Lopemin [Concomitant]

REACTIONS (2)
  - Diabetes mellitus [Recovering/Resolving]
  - Drug ineffective [Unknown]
